FAERS Safety Report 9502472 (Version 1)
Quarter: 2013Q3

REPORT INFORMATION
  Report Type: Other
  Country: US (occurrence: US)
  Receive Date: 20130906
  Receipt Date: 20130906
  Transmission Date: 20140515
  Serious: Yes (Other)
  Sender: FDA-Public Use
  Company Number: US-BRISTOL-MYERS SQUIBB COMPANY-19341726

PATIENT
  Age: 1 Day
  Sex: Male

DRUGS (2)
  1. PACLITAXEL [Suspect]
     Dosage: ON DAYS 1, 8 AND 15 OF A 28-DAY CYCLE
     Route: 064
  2. CARBOPLATIN [Suspect]
     Dosage: 1 DF: AUC 6
     Route: 064

REACTIONS (2)
  - Low birth weight baby [Recovered/Resolved]
  - Talipes [Unknown]
